FAERS Safety Report 9238859 (Version 1)
Quarter: 2013Q1

REPORT INFORMATION
  Report Type: Spontaneous
  Country: US (occurrence: None)
  Receive Date: 20121107
  Receipt Date: 20121107
  Transmission Date: 20140127
  Serious: No
  Sender: FDA-Public Use
  Company Number: 2012HGS-003824

PATIENT
  Age: 53 Year
  Sex: Female
  Weight: 62.6 kg

DRUGS (10)
  1. BENLYSTA [Suspect]
     Indication: SYSTEMIC LUPUS ERYTHEMATOSUS
     Dosage: 1 IN 28  D
     Route: 041
     Dates: start: 20120718
  2. CYMBALTA (DULOXETINE HYDROCHLORIDE) (DULOXETINE HYDROCHLORIDE) [Concomitant]
  3. PREDNISONE (PREDNISONE) (PREDNISONE) [Concomitant]
  4. METHADONE (METHADONE) (METHADONE) [Concomitant]
  5. DILAUDID (HYDROMORPHONE HYDROCHLORIDE) (HYDROMORPHONE HYDROCHLORIDE) [Concomitant]
  6. PRILOSEC (OMEPRAZOLE) (OMEPRAZOLE) [Concomitant]
  7. ZANAFLEX (TIZANIDFINE HYDROCHLORIDE) (TIZANIDINE HYDROCHLORDIE) [Concomitant]
  8. XANAX (ALPRAZOLAM) (ALPRAZOLAM) [Concomitant]
  9. PHENERGAN (PROMETHAZINE) (PROMETHAZINE) [Concomitant]
  10. ZOFRAN (ONDANSETRON) (ONDANSETRON) [Concomitant]

REACTIONS (6)
  - Muscle spasms [None]
  - Oedema peripheral [None]
  - Pain in extremity [None]
  - Nausea [None]
  - Diarrhoea [None]
  - Abdominal pain upper [None]
